FAERS Safety Report 8153769-7 (Version None)
Quarter: 2012Q1

REPORT INFORMATION
  Report Type: 
  Country: None (occurrence: None)
  Receive Date: 20120221
  Receipt Date: 20120216
  Transmission Date: 20120608
  Serious: Yes (Other)
  Sender: FDA-Public Use
  Company Number: US-GLAXOSMITHKLINE-A0966212A

PATIENT
  Age: 78 Year
  Sex: Female

DRUGS (5)
  1. INHALER [Concomitant]
     Route: 055
  2. DIABETES MEDICATION [Concomitant]
  3. UNSPECIFIED MEDICATION [Concomitant]
     Indication: GASTROOESOPHAGEAL REFLUX DISEASE
  4. BLOOD PRESSURE MEDICATION [Concomitant]
     Indication: HYPERTENSION
  5. ADVAIR DISKUS 100/50 [Suspect]
     Indication: ASTHMA
     Dosage: 1PUFF TWICE PER DAY
     Route: 055
     Dates: start: 20070101

REACTIONS (7)
  - ASTHMA [None]
  - PRODUCT QUALITY ISSUE [None]
  - DYSPNOEA [None]
  - CHEST DISCOMFORT [None]
  - DRUG INEFFECTIVE [None]
  - INHALATION THERAPY [None]
  - CANDIDIASIS [None]
